FAERS Safety Report 25633550 (Version 1)
Quarter: 2025Q3

REPORT INFORMATION
  Report Type: Spontaneous
  Country: US (occurrence: None)
  Receive Date: 20250801
  Receipt Date: 20250801
  Transmission Date: 20251020
  Serious: Yes (Life-Threatening, Disabling)
  Sender: FDA-CTU
  Company Number: None

PATIENT
  Age: 35 Year
  Sex: Female
  Weight: 56.25 kg

DRUGS (1)
  1. AZITHROMYCIN [Suspect]
     Active Substance: AZITHROMYCIN

REACTIONS (11)
  - Skin reaction [None]
  - Skin discolouration [None]
  - Skin lesion [None]
  - Swelling face [None]
  - Urticaria [None]
  - Depressed mood [None]
  - Dysbiosis [None]
  - Hypophagia [None]
  - Emotional distress [None]
  - Helplessness [None]
  - Skin burning sensation [None]

NARRATIVE: CASE EVENT DATE: 20250727
